FAERS Safety Report 7951622-2 (Version None)
Quarter: 2011Q4

REPORT INFORMATION
  Report Type: 
  Country: None (occurrence: None)
  Receive Date: 20111201
  Receipt Date: 20111123
  Transmission Date: 20120403
  Serious: Yes (Other)
  Sender: FDA-Public Use
  Company Number: US-BAYER-200940942NA

PATIENT
  Age: 41 Year
  Sex: Male
  Weight: 72.562 kg

DRUGS (4)
  1. TRASYLOL [Suspect]
     Indication: PRODUCT USED FOR UNKNOWN INDICATION
     Dosage: UNK
     Route: 042
     Dates: start: 20031101
  2. TRASYLOL [Suspect]
     Dosage: UNK
     Route: 042
     Dates: start: 20021207
  3. HEPARIN [Concomitant]
     Dosage: UNK
     Dates: start: 20021207
  4. NIPRIDE [Concomitant]
     Dosage: UNK
     Dates: start: 20021207

REACTIONS (12)
  - MULTI-ORGAN FAILURE [None]
  - RENAL INJURY [None]
  - RENAL FAILURE [None]
  - INJURY [None]
  - PAIN [None]
  - ANHEDONIA [None]
  - DISABILITY [None]
  - PSYCHOLOGICAL TRAUMA [None]
  - UNEVALUABLE EVENT [None]
  - DEPRESSION [None]
  - ANXIETY [None]
  - FEAR [None]
